FAERS Safety Report 15315633 (Version 1)
Quarter: 2018Q3

REPORT INFORMATION
  Report Type: Spontaneous
  Country: US (occurrence: US)
  Receive Date: 20180815
  Receipt Date: 20180815
  Transmission Date: 20181010
  Serious: No
  Sender: FDA-Public Use
  Company Number: None

PATIENT
  Age: 18 Year
  Sex: Female
  Weight: 58.5 kg

DRUGS (6)
  1. NOVOLOG [Concomitant]
     Active Substance: INSULIN ASPART
  2. MULTI?VITAMIN?GUMMY BEARS [Concomitant]
  3. BASAGLAR [Suspect]
     Active Substance: INSULIN GLARGINE
     Indication: TYPE 1 DIABETES MELLITUS
     Dosage: ?          QUANTITY:5 PENS;OTHER ROUTE:INJECTED IN ARM, STOMACH, LEG?
     Dates: start: 20180714, end: 20180721
  4. LANTUS [Concomitant]
     Active Substance: INSULIN GLARGINE
  5. VITAMIN C [Concomitant]
     Active Substance: ASCORBIC ACID
  6. CYZATDINE [Concomitant]

REACTIONS (4)
  - Product substitution issue [None]
  - Drug ineffective [None]
  - Blood glucose increased [None]
  - Therapy change [None]

NARRATIVE: CASE EVENT DATE: 20180716
